FAERS Safety Report 9231565 (Version 1)
Quarter: 2013Q1

REPORT INFORMATION
  Report Type: Spontaneous
  Country: US (occurrence: None)
  Receive Date: 20121031
  Receipt Date: 20121031
  Transmission Date: 20140127
  Serious: Yes (Other)
  Sender: FDA-Public Use
  Company Number: PHEH2012US012542

PATIENT
  Age: 50 Year
  Sex: Female

DRUGS (6)
  1. GILENYA (FTY) CAPSULE, 0.5MG [Suspect]
     Indication: MULTIPLE SCLEROSIS
     Route: 048
     Dates: start: 20120528
  2. FISH OIL (FISH OIL) CAPSULE [Concomitant]
  3. GABAPENTIN (GABAPENTIN) [Concomitant]
  4. PROVGIL (MODAFINIL) [Concomitant]
  5. TOPAMAX (TOPIRAMATE) [Concomitant]
  6. TRAZODONE (TRAZODONE) [Concomitant]

REACTIONS (1)
  - Bradycardia [None]
